FAERS Safety Report 11938624 (Version 1)
Quarter: 2016Q1

REPORT INFORMATION
  Report Type: Spontaneous
  Country: US (occurrence: None)
  Receive Date: 20160120
  Receipt Date: 20160120
  Transmission Date: 20160526
  Serious: No
  Sender: FDA-Public Use
  Company Number: None

PATIENT
  Age: 63 Year
  Sex: Male

DRUGS (2)
  1. OXYCODONE/APAP 7.5/325 [Suspect]
     Active Substance: ACETAMINOPHEN\OXYCODONE HYDROCHLORIDE
     Dosage: 90?TID?PO
     Route: 048
  2. HYDROCODONE/APAP 7.5/325 [Suspect]
     Active Substance: ACETAMINOPHEN\HYDROCODONE
     Indication: PAIN
     Dosage: 90?TID?PO
     Route: 048
     Dates: start: 20151210

REACTIONS (1)
  - Drug dispensing error [None]

NARRATIVE: CASE EVENT DATE: 20151210
